FAERS Safety Report 7369706-9 (Version None)
Quarter: 2011Q1

REPORT INFORMATION
  Report Type: 
  Country: None (occurrence: None)
  Receive Date: 20110323
  Receipt Date: 20110321
  Transmission Date: 20110831
  Serious: Yes (Other)
  Sender: FDA-Public Use
  Company Number: GXKR2011DE01005

PATIENT
  Sex: Female

DRUGS (4)
  1. QUETIAPINE [Concomitant]
     Dosage: UP TO 400 MG DAILY
     Route: 048
  2. BUPROPION [Concomitant]
     Dosage: UP TO 300 MG DAILY
     Route: 048
  3. LAMOTRIGIN 1A PHARMA [Suspect]
     Indication: MENTAL DISORDER
     Dosage: UP TO 200 MG DAILY
     Route: 048
  4. ESCITALOPRAM [Concomitant]
     Dosage: UP TO 20 MG DAILY
     Route: 048

REACTIONS (2)
  - POLYDIPSIA [None]
  - DIABETES INSIPIDUS [None]
